FAERS Safety Report 6741215-7 (Version None)
Quarter: 2010Q2

REPORT INFORMATION
  Report Type: 
  Country: None (occurrence: None)
  Receive Date: 20100526
  Receipt Date: 20100513
  Transmission Date: 20101027
  Serious: Yes (Other)
  Sender: FDA-Public Use
  Company Number: PHHY2010CA31214

PATIENT
  Sex: Male

DRUGS (2)
  1. CLOZARIL [Suspect]
     Dosage: UNK
     Dates: start: 20080421
  2. CLOZARIL [Suspect]
     Dosage: 12.5 MG, UNK

REACTIONS (3)
  - CONFUSIONAL STATE [None]
  - FOAMING AT MOUTH [None]
  - NAUSEA [None]
